FAERS Safety Report 4997122-3 (Version None)
Quarter: 2006Q2

REPORT INFORMATION
  Report Type: 
  Country: None (occurrence: None)
  Receive Date: 20060508
  Receipt Date: 20060508
  Transmission Date: 20061013
  Serious: Yes (Other)
  Sender: FDA-Public Use
  Company Number: None

PATIENT
  Age: 53 Year
  Sex: Female
  Weight: 61.2356 kg

DRUGS (2)
  1. PREMPRO [Suspect]
     Indication: MENOPAUSE
     Dosage: 1      EVENING   PO
     Route: 048
     Dates: start: 20050505, end: 20050505
  2. PREMPRO [Suspect]
     Indication: MENOPAUSE
     Dosage: 1       MORNING     PO
     Route: 048
     Dates: start: 20050505, end: 20050505

REACTIONS (2)
  - DRUG INEFFECTIVE [None]
  - PHARMACEUTICAL PRODUCT COMPLAINT [None]
